FAERS Safety Report 7835445-0 (Version None)
Quarter: 2011Q4

REPORT INFORMATION
  Report Type: 
  Country: None (occurrence: None)
  Receive Date: 20111020
  Receipt Date: 20111007
  Transmission Date: 20120403
  Serious: Yes (Hospitalization, Other)
  Sender: FDA-Public Use
  Company Number: DSJ-2011-21858

PATIENT
  Age: 78 Year
  Sex: Male

DRUGS (3)
  1. BENICAR ANLO (OLMESARTAN MEDOXOMIL, AMLODIPINE BESILATE) TABELT) (OLME [Suspect]
     Indication: HYPERTENSION
     Dosage: 40/5 MG (1 IN 1 D),PER ORAL : 80/10 MG (1 IN 1 D), PER ORAL
     Route: 048
     Dates: start: 20110801
  2. BENICAR ANLO (OLMESARTAN MEDOXOMIL, AMLODIPINE BESILATE) TABELT) (OLME [Suspect]
     Indication: HYPERTENSION
     Dosage: 40/5 MG (1 IN 1 D),PER ORAL : 80/10 MG (1 IN 1 D), PER ORAL
     Route: 048
     Dates: start: 20100101, end: 20110801
  3. CODEINE/ACETAMINOPHEN(CODEINE, PARACETAMOL) (CODEINE, PARACETAMOL) [Concomitant]

REACTIONS (5)
  - DRUG INEFFECTIVE [None]
  - OSTEOARTHRITIS [None]
  - CEREBROVASCULAR ACCIDENT [None]
  - OVERDOSE [None]
  - HEMIPARESIS [None]
